FAERS Safety Report 5163857-5 (Version None)
Quarter: 2006Q4

REPORT INFORMATION
  Report Type: 
  Country: None (occurrence: None)
  Receive Date: 20061129
  Receipt Date: 20061129
  Transmission Date: 20070319
  Serious: Yes (Hospitalization)
  Sender: FDA-Public Use
  Company Number: None

PATIENT
  Sex: Male
  Weight: 66.6 kg

DRUGS (3)
  1. TEMOZOLOMIDE [Suspect]
     Dosage: 3370 MG
  2. COUMADIN [Concomitant]
  3. KEPPRA [Concomitant]

REACTIONS (1)
  - STATUS EPILEPTICUS [None]
